FAERS Safety Report 10452180 (Version 3)
Quarter: 2014Q3

REPORT INFORMATION
  Report Type: Report from Study
  Country: BR (occurrence: BR)
  Receive Date: 20140915
  Receipt Date: 20140922
  Transmission Date: 20150326
  Serious: Yes (Hospitalization, Disabling, Other)
  Sender: FDA-Public Use
  Company Number: BR-JNJFOC-20140705407

PATIENT
  Age: 81 Year
  Sex: Female
  Weight: 44 kg

DRUGS (4)
  1. XARELTO [Suspect]
     Active Substance: RIVAROXABAN
     Indication: ANTICOAGULANT THERAPY
     Route: 048
  2. XARELTO [Suspect]
     Active Substance: RIVAROXABAN
     Indication: CEREBROVASCULAR ACCIDENT
     Route: 048
  3. XARELTO [Suspect]
     Active Substance: RIVAROXABAN
     Indication: ANTICOAGULANT THERAPY
     Route: 048
  4. XARELTO [Suspect]
     Active Substance: RIVAROXABAN
     Indication: CEREBROVASCULAR ACCIDENT
     Route: 048

REACTIONS (7)
  - Anaemia [Unknown]
  - Intestinal haemorrhage [Recovering/Resolving]
  - Confusional state [Unknown]
  - Sleep disorder [Unknown]
  - Coordination abnormal [Unknown]
  - Haemoglobin decreased [Unknown]
  - Abasia [Unknown]

NARRATIVE: CASE EVENT DATE: 201408
